FAERS Safety Report 6972653-5 (Version None)
Quarter: 2010Q3

REPORT INFORMATION
  Report Type: 
  Country: None (occurrence: None)
  Receive Date: 20100909
  Receipt Date: 20100830
  Transmission Date: 20110219
  Serious: Yes (Other)
  Sender: FDA-Public Use
  Company Number: JP-PFIZER INC-2010104897

PATIENT

DRUGS (5)
  1. SOLANAX [Suspect]
     Dosage: UNK
  2. AMOXAN [Suspect]
     Dosage: UNK
  3. MERCAZOLE [Concomitant]
     Dosage: UNK
  4. PAXIL [Concomitant]
     Dosage: UNK
  5. LENDORMIN [Concomitant]
     Dosage: UNK

REACTIONS (1)
  - HYPERTHYROIDISM [None]
